FAERS Safety Report 21785781 (Version 1)
Quarter: 2022Q4

REPORT INFORMATION
  Report Type: Other
  Country: US (occurrence: None)
  Receive Date: 20221227
  Receipt Date: 20221227
  Transmission Date: 20230112
  Serious: Yes (Other)
  Sender: FDA-Public Use
  Company Number: US-Saptalis Pharmaceuticals,LLC-000322

PATIENT
  Age: 87 Year
  Sex: Male

DRUGS (6)
  1. TRIAMCINOLONE [Suspect]
     Active Substance: TRIAMCINOLONE
     Indication: Necrotising scleritis
     Dosage: 40 MG/ML IN 0.3 ML
  2. MOXIFLOXACIN [Suspect]
     Active Substance: MOXIFLOXACIN
     Indication: Necrotising scleritis
  3. CYCLOPENTOLATE [Suspect]
     Active Substance: CYCLOPENTOLATE
     Indication: Necrotising scleritis
     Dosage: TWICE DAILY
  4. LOTEPREDNOL [Suspect]
     Active Substance: LOTEPREDNOL
     Indication: Necrotising scleritis
     Dosage: FOUR TIMES DAILY
  5. CIPROFLOXACIN [Suspect]
     Active Substance: CIPROFLOXACIN
     Indication: Necrotising scleritis
     Dosage: 500 MG TWICE DAILY
     Route: 048
  6. CEFTAZIDIME [Suspect]
     Active Substance: CEFTAZIDIME
     Indication: Necrotising scleritis
     Dosage: 50MG/ML

REACTIONS (1)
  - Scleromalacia [Not Recovered/Not Resolved]
